FAERS Safety Report 16947900 (Version 1)
Quarter: 2019Q4

REPORT INFORMATION
  Report Type: Spontaneous
  Country: US (occurrence: US)
  Receive Date: 20191022
  Receipt Date: 20191022
  Transmission Date: 20200122
  Serious: No
  Sender: FDA-Public Use
  Company Number: US-ROCHE-2376975

PATIENT
  Age: 75 Year
  Sex: Male

DRUGS (2)
  1. ESBRIET [Suspect]
     Active Substance: PIRFENIDONE
     Indication: PRODUCT USED FOR UNKNOWN INDICATION
     Route: 048
     Dates: start: 20190513
  2. ESBRIET [Suspect]
     Active Substance: PIRFENIDONE
     Route: 048
     Dates: start: 20190415

REACTIONS (4)
  - Peripheral swelling [Unknown]
  - Erythema [Unknown]
  - Scratch [Unknown]
  - Pruritus [Unknown]

NARRATIVE: CASE EVENT DATE: 20190516
